FAERS Safety Report 8494845 (Version 4)
Quarter: 2013Q4

REPORT INFORMATION
  Report Type: Spontaneous
  Country: US (occurrence: US)
  Receive Date: 20120405
  Receipt Date: 20131216
  Transmission Date: 20140711
  Serious: Yes (Hospitalization)
  Sender: FDA-Public Use
  Company Number: US-BIOGENIDEC-2012BI010839

PATIENT
  Age: 49 Year
  Sex: Female

DRUGS (2)
  1. AVONEX [Suspect]
     Indication: MULTIPLE SCLEROSIS
     Route: 030
     Dates: start: 20080201
  2. AVONEX [Suspect]
     Indication: MULTIPLE SCLEROSIS
     Route: 030
     Dates: start: 20081031

REACTIONS (7)
  - Intraductal proliferative breast lesion [Recovered/Resolved]
  - Post procedural complication [Recovered/Resolved]
  - Visual impairment [Not Recovered/Not Resolved]
  - Optic atrophy [Not Recovered/Not Resolved]
  - Central nervous system lesion [Unknown]
  - Staphylococcal infection [Recovered/Resolved]
  - Nausea [Recovered/Resolved]
